FAERS Safety Report 16417336 (Version 7)
Quarter: 2020Q3

REPORT INFORMATION
  Report Type: Spontaneous
  Country: US (occurrence: US)
  Receive Date: 20190611
  Receipt Date: 20200710
  Transmission Date: 20201102
  Serious: Yes (Other)
  Sender: FDA-Public Use
  Company Number: US-PFIZER INC-2017029430

PATIENT
  Age: 52 Year
  Sex: Male

DRUGS (10)
  1. OXYCODONE [Concomitant]
     Active Substance: OXYCODONE
     Dosage: UNK
  2. MORPHINE SULFATE. [Concomitant]
     Active Substance: MORPHINE SULFATE
     Dosage: UNK
  3. LYRICA [Concomitant]
     Active Substance: PREGABALIN
     Indication: BACK PAIN
     Dosage: 300 MG, DAILY (AT BEDTIME)
     Route: 048
  4. AMBIEN [Concomitant]
     Active Substance: ZOLPIDEM TARTRATE
     Dosage: UNK
  5. ADDERALL [Concomitant]
     Active Substance: AMPHETAMINE ASPARTATE\AMPHETAMINE SULFATE\DEXTROAMPHETAMINE SACCHARATE\DEXTROAMPHETAMINE SULFATE
     Dosage: UNK
  6. TESTOSTERONE. [Concomitant]
     Active Substance: TESTOSTERONE
     Dosage: UNK
  7. SKELAXIN [Suspect]
     Active Substance: METAXALONE
     Indication: BACK PAIN
     Dosage: 800 MG, ONCE A DAY (QUANTITY FOR 90 DAYS: 90)
     Route: 048
  8. SKELAXIN [Suspect]
     Active Substance: METAXALONE
     Indication: MUSCLE RELAXANT THERAPY
  9. LYRICA [Concomitant]
     Active Substance: PREGABALIN
     Dosage: 2 CAPSULES, 1X/DAY
  10. ADVAIR HFA [Concomitant]
     Active Substance: FLUTICASONE PROPIONATE\SALMETEROL XINAFOATE
     Dosage: UNK

REACTIONS (10)
  - Bone density decreased [Unknown]
  - Parkinson^s disease [Unknown]
  - Visual impairment [Unknown]
  - Reading disorder [Unknown]
  - Weight decreased [Unknown]
  - Body height decreased [Unknown]
  - Product use in unapproved indication [Unknown]
  - Fatigue [Unknown]
  - Urge incontinence [Unknown]
  - Off label use [Unknown]
